FAERS Safety Report 5944762-0 (Version None)
Quarter: 2008Q4

REPORT INFORMATION
  Report Type: 
  Country: None (occurrence: None)
  Receive Date: 20081106
  Receipt Date: 20081106
  Transmission Date: 20090506
  Serious: Yes (Hospitalization)
  Sender: FDA-Public Use
  Company Number: None

PATIENT
  Age: 59 Year
  Sex: Male

DRUGS (3)
  1. INDOMETHACIN [Suspect]
     Indication: INFLAMMATION
     Dosage: 50MG TID PO
     Route: 048
  2. INDOMETHACIN [Suspect]
     Indication: PAIN
     Dosage: 50MG TID PO
     Route: 048
  3. ASPIRIN [Suspect]

REACTIONS (6)
  - ABDOMINAL PAIN LOWER [None]
  - DUODENAL ULCER [None]
  - GASTROINTESTINAL NECROSIS [None]
  - HAEMATOCRIT DECREASED [None]
  - MELAENA [None]
  - THROMBOSIS [None]
